FAERS Safety Report 7683745-X (Version None)
Quarter: 2011Q3

REPORT INFORMATION
  Report Type: 
  Country: None (occurrence: None)
  Receive Date: 20110810
  Receipt Date: 20110802
  Transmission Date: 20111222
  Serious: Yes (Hospitalization)
  Sender: FDA-Public Use
  Company Number: UCM201104-000006

PATIENT
  Age: 51 Year
  Sex: Male

DRUGS (9)
  1. SIMVASTATIN [Suspect]
     Indication: CORONARY ARTERY DISEASE
     Dosage: 20 MG/DAY
  2. AMLODIPINE [Suspect]
     Indication: CORONARY ARTERY DISEASE
     Dosage: 50 MG/DAY
  3. INDAPAMIDE [Suspect]
     Indication: CORONARY ARTERY DISEASE
     Dosage: 50 MG/DAY
  4. ASPIRIN [Suspect]
     Indication: CORONARY ARTERY DISEASE
     Dosage: 50 MG/DAY
  5. QUINAPRIL HCL [Suspect]
     Indication: CORONARY ARTERY DISEASE
     Dosage: 20 MG TWICE DAILY
  6. SPIRONOLACTONE [Suspect]
     Indication: CORONARY ARTERY DISEASE
     Dosage: 50 MG/DAY
  7. ISOSORBIDE MONONITRATE [Suspect]
     Indication: CORONARY ARTERY DISEASE
     Dosage: 50 MG/DAY
  8. BISOPROLOL FUMARATE [Suspect]
     Indication: CORONARY ARTERY DISEASE
  9. INSULIN [Suspect]
     Indication: CORONARY ARTERY DISEASE
     Dosage: 50 MG/AY

REACTIONS (9)
  - ATRIOVENTRICULAR BLOCK COMPLETE [None]
  - RHABDOMYOLYSIS [None]
  - DEHYDRATION [None]
  - DIARRHOEA [None]
  - MITRAL VALVE INCOMPETENCE [None]
  - HYPERKALAEMIA [None]
  - SYNCOPE [None]
  - TRICUSPID VALVE INCOMPETENCE [None]
  - CONFUSIONAL STATE [None]
